FAERS Safety Report 5942822-1 (Version None)
Quarter: 2008Q4

REPORT INFORMATION
  Report Type: 
  Country: None (occurrence: None)
  Receive Date: 20081103
  Receipt Date: 20081023
  Transmission Date: 20090506
  Serious: Yes (Hospitalization)
  Sender: FDA-Public Use
  Company Number: 2008BI011537

PATIENT
  Age: 60 Year
  Sex: Female

DRUGS (4)
  1. AVONEX [Suspect]
     Indication: MULTIPLE SCLEROSIS
     Dosage: IM; 30 UG; QW; IM
     Route: 030
  2. AVONEX [Suspect]
  3. CON MEDS [Concomitant]
  4. PREV MEDS [Concomitant]

REACTIONS (2)
  - MALIGNANT MELANOMA [None]
  - NOSOCOMIAL INFECTION [None]
